FAERS Safety Report 5473469-1 (Version None)
Quarter: 2007Q4

REPORT INFORMATION
  Report Type: 
  Country: None (occurrence: None)
  Receive Date: 20071001
  Receipt Date: 20070925
  Transmission Date: 20080405
  Serious: Yes (Hospitalization)
  Sender: FDA-Public Use
  Company Number: US-SHR-US-2007-003564

PATIENT
  Age: 38 Year
  Sex: Female
  Weight: 78 kg

DRUGS (2)
  1. BETASERON [Suspect]
     Indication: PRIMARY PROGRESSIVE MULTIPLE SCLEROSIS
     Route: 058
     Dates: start: 19970925, end: 19990901
  2. BETASERON [Suspect]
     Dosage: 8 MIU, EVERY 2D
     Route: 058
     Dates: start: 20061129

REACTIONS (3)
  - ABASIA [None]
  - HYPOAESTHESIA [None]
  - LETHARGY [None]
